FAERS Safety Report 6866445-5 (Version None)
Quarter: 2010Q3

REPORT INFORMATION
  Report Type: 
  Country: None (occurrence: None)
  Receive Date: 20100722
  Receipt Date: 20100716
  Transmission Date: 20110219
  Serious: Yes (Hospitalization)
  Sender: FDA-Public Use
  Company Number: IT-BAYER-201033199GPV

PATIENT
  Age: 50 Year
  Sex: Male

DRUGS (6)
  1. ASPIRIN [Suspect]
     Indication: THROMBOSIS PROPHYLAXIS
     Dosage: TOTAL DAILY DOSE: 100 MG
     Route: 048
     Dates: start: 20100601, end: 20100714
  2. DEPAKENE [Suspect]
     Indication: EPILEPSY
     Route: 048
     Dates: start: 20100526, end: 20100624
  3. KEPPRA [Suspect]
     Indication: EPILEPSY
     Route: 048
     Dates: start: 20100601, end: 20100714
  4. NIMODIPINE [Concomitant]
     Indication: SUBARACHNOID HAEMORRHAGE
     Route: 048
     Dates: start: 20100526, end: 20100714
  5. FRISIUM [Concomitant]
     Indication: EPILEPSY
     Route: 048
     Dates: start: 20100531, end: 20100714
  6. PANTORC [Concomitant]
     Indication: GASTRITIS
     Route: 048
     Dates: start: 20100528, end: 20100714

REACTIONS (1)
  - THROMBOCYTOPENIA [None]
